FAERS Safety Report 9310840 (Version 2)
Quarter: 2013Q2

REPORT INFORMATION
  Report Type: Spontaneous
  Country: US (occurrence: US)
  Receive Date: 20130528
  Receipt Date: 20130620
  Transmission Date: 20140414
  Serious: No
  Sender: FDA-Public Use
  Company Number: US-009507513-1305USA014032

PATIENT
  Age: 66 Year
  Sex: Male
  Weight: 70.3 kg

DRUGS (1)
  1. AZASITE [Suspect]
     Indication: BLEPHARITIS
     Dosage: ONE DROP TWICE PER DAY
     Route: 061
     Dates: start: 20130517, end: 20130530

REACTIONS (5)
  - Adverse event [Recovered/Resolved]
  - Erythema [Recovered/Resolved]
  - Drug dose omission [Unknown]
  - Inappropriate schedule of drug administration [Unknown]
  - Product packaging quantity issue [Unknown]
